FAERS Safety Report 11574251 (Version 1)
Quarter: 2015Q3

REPORT INFORMATION
  Report Type: Spontaneous
  Country: US (occurrence: None)
  Receive Date: 20150928
  Receipt Date: 20150928
  Transmission Date: 20151125
  Serious: Yes (Hospitalization)
  Sender: FDA-Public Use
  Company Number: None

PATIENT
  Age: 60 Year
  Sex: Male
  Weight: 70.2 kg

DRUGS (2)
  1. TRAZODONE [Suspect]
     Active Substance: TRAZODONE HYDROCHLORIDE
     Route: 048
     Dates: start: 20060828
  2. VENLAFAXINE [Suspect]
     Active Substance: VENLAFAXINE HYDROCHLORIDE
     Route: 048
     Dates: start: 20140101, end: 20140805

REACTIONS (10)
  - Serotonin syndrome [None]
  - Confusional state [None]
  - Balance disorder [None]
  - Accidental overdose [None]
  - Abdominal pain [None]
  - Dizziness [None]
  - Tremor [None]
  - Hyperglycaemia [None]
  - Disorientation [None]
  - Fall [None]

NARRATIVE: CASE EVENT DATE: 20140805
